FAERS Safety Report 18493897 (Version 1)
Quarter: 2020Q4

REPORT INFORMATION
  Report Type: Spontaneous
  Country: US (occurrence: US)
  Receive Date: 20201112
  Receipt Date: 20201112
  Transmission Date: 20210114
  Serious: Yes (Other)
  Sender: FDA-Public Use
  Company Number: US-009507513-2011USA001324

PATIENT
  Age: 37 Year
  Sex: Female

DRUGS (11)
  1. ASPIRIN. [Concomitant]
     Active Substance: ASPIRIN
  2. ENDOMETRIN [Concomitant]
     Active Substance: PROGESTERONE
  3. MENOPUR [Concomitant]
     Active Substance: FOLLITROPIN\LUTEINIZING HORMONE
  4. PROGESTERONE. [Concomitant]
     Active Substance: PROGESTERONE
  5. FOLLISTIM AQ [Suspect]
     Active Substance: FOLLITROPIN
     Indication: INFERTILITY FEMALE
     Dosage: 150 UNITS, QD (10-14 DAYS) (STRENGTH: 900/1.08 ML)
     Route: 058
     Dates: start: 20200803
  6. AZITHROMYCIN ANHYDROUS. [Concomitant]
     Active Substance: AZITHROMYCIN ANHYDROUS
  7. VITAMIN D (UNSPECIFIED) [Concomitant]
     Active Substance: VITAMIN D NOS
  8. GANIRELIX ACETATE. [Concomitant]
     Active Substance: GANIRELIX ACETATE
  9. LEUPROLIDE [Concomitant]
     Active Substance: LEUPROLIDE
  10. ESTRADIOL. [Concomitant]
     Active Substance: ESTRADIOL
  11. KURVELO [Concomitant]
     Active Substance: ETHINYL ESTRADIOL\LEVONORGESTREL

REACTIONS (1)
  - Abortion spontaneous [Unknown]

NARRATIVE: CASE EVENT DATE: 20200919
